FAERS Safety Report 12072105 (Version 1)
Quarter: 2016Q1

REPORT INFORMATION
  Report Type: Spontaneous
  Country: US (occurrence: US)
  Receive Date: 20160212
  Receipt Date: 20160212
  Transmission Date: 20160526
  Serious: Yes (Hospitalization, Other)
  Sender: FDA-Public Use
  Company Number: US-BEH-2016058504

PATIENT
  Age: 49 Year
  Sex: Male
  Weight: 95 kg

DRUGS (1)
  1. HIZENTRA [Suspect]
     Active Substance: HUMAN IMMUNOGLOBULIN G
     Indication: PRODUCT USED FOR UNKNOWN INDICATION
     Route: 058
     Dates: start: 20140718

REACTIONS (2)
  - Atypical pneumonia [Unknown]
  - Bronchial hyperreactivity [Unknown]

NARRATIVE: CASE EVENT DATE: 20160110
